FAERS Safety Report 13331361 (Version 1)
Quarter: 2017Q1

REPORT INFORMATION
  Report Type: Spontaneous
  Country: US (occurrence: US)
  Receive Date: 20170313
  Receipt Date: 20170313
  Transmission Date: 20170428
  Serious: Yes (Other)
  Sender: FDA-Public Use
  Company Number: None

PATIENT
  Age: 64 Year
  Sex: Female
  Weight: 64.8 kg

DRUGS (1)
  1. VALACYCLOVIR HCL [Suspect]
     Active Substance: VALACYCLOVIR HYDROCHLORIDE
     Indication: ORAL HERPES
     Dosage: ?          QUANTITY:30 TABLET(S);?
     Route: 048
     Dates: start: 20170311, end: 20170313

REACTIONS (2)
  - Abdominal pain upper [None]
  - Product substitution issue [None]

NARRATIVE: CASE EVENT DATE: 20170312
